FAERS Safety Report 8193718-9 (Version None)
Quarter: 2012Q1

REPORT INFORMATION
  Report Type: 
  Country: None (occurrence: None)
  Receive Date: 20120308
  Receipt Date: 20120306
  Transmission Date: 20120608
  Serious: Yes (Hospitalization)
  Sender: FDA-Public Use
  Company Number: CA-ABBOTT-12P-028-0912576-00

PATIENT
  Sex: Male
  Weight: 70 kg

DRUGS (1)
  1. LUPRON DEPOT [Suspect]
     Indication: PROSTATE CANCER
     Dates: start: 20090307

REACTIONS (2)
  - CEREBROVASCULAR ACCIDENT [None]
  - MALAISE [None]
